FAERS Safety Report 23660443 (Version 1)
Quarter: 2024Q1

REPORT INFORMATION
  Report Type: Spontaneous
  Country: JP (occurrence: JP)
  Receive Date: 20240321
  Receipt Date: 20240321
  Transmission Date: 20240410
  Serious: Yes (Hospitalization)
  Sender: FDA-Public Use
  Company Number: JP-AMGEN-JPNSP2024054266

PATIENT

DRUGS (2)
  1. LUMAKRAS [Suspect]
     Active Substance: SOTORASIB
     Indication: K-ras gene mutation
     Dosage: 960 MILLIGRAM, QD
     Route: 048
     Dates: start: 202401
  2. LUMAKRAS [Suspect]
     Active Substance: SOTORASIB
     Indication: Non-small cell lung cancer

REACTIONS (2)
  - Unevaluable event [Unknown]
  - Pruritus [Recovered/Resolved]
